FAERS Safety Report 17077784 (Version 3)
Quarter: 2020Q1

REPORT INFORMATION
  Report Type: Report from Study
  Country: US (occurrence: US)
  Receive Date: 20191126
  Receipt Date: 20200120
  Transmission Date: 20200409
  Serious: Yes (Hospitalization, Other)
  Sender: FDA-Public Use
  Company Number: US-BAYER-2019-213174

PATIENT
  Age: 57 Year
  Sex: Male

DRUGS (8)
  1. ASPIRIN [ACETYLSALICYLIC ACID] [Concomitant]
     Active Substance: ASPIRIN
  2. VITRAKVI [Suspect]
     Active Substance: LAROTRECTINIB
     Indication: METASTASIS
     Dosage: 100 MG, BID
     Route: 048
     Dates: start: 20191107
  3. VITRAKVI [Suspect]
     Active Substance: LAROTRECTINIB
     Indication: METASTASIS
     Dosage: 100 MG, BID
     Route: 048
     Dates: start: 20180711
  4. AMLODIPINE BESILATE [Concomitant]
     Active Substance: AMLODIPINE BESYLATE
  5. CARVEDIOL [Concomitant]
     Active Substance: CARVEDILOL
  6. VITRAKVI [Suspect]
     Active Substance: LAROTRECTINIB
     Indication: METASTASIS
     Dosage: 100 MG, BID
     Dates: start: 20190717
  7. ATORVASTATIN CALCIUM. [Concomitant]
     Active Substance: ATORVASTATIN CALCIUM
  8. CLONIDINE HCL [Concomitant]
     Active Substance: CLONIDINE HYDROCHLORIDE

REACTIONS (13)
  - Loss of consciousness [None]
  - Hospitalisation [None]
  - Haemorrhage [None]
  - Blood pressure increased [None]
  - Chest pain [None]
  - Fall [None]
  - Hand fracture [None]
  - Sleep apnoea syndrome [Not Recovered/Not Resolved]
  - Product dose omission [None]
  - Malaise [None]
  - Scratch [None]
  - Hallucinations, mixed [None]
  - Hypersomnia [Not Recovered/Not Resolved]
